FAERS Safety Report 19838693 (Version 1)
Quarter: 2021Q3

REPORT INFORMATION
  Report Type: Spontaneous
  Country: US (occurrence: US)
  Receive Date: 20210915
  Receipt Date: 20210915
  Transmission Date: 20211014
  Serious: Yes (Death)
  Sender: FDA-Public Use
  Company Number: None

PATIENT
  Age: 68 Year
  Sex: Male

DRUGS (3)
  1. WARFARIN [Concomitant]
     Active Substance: WARFARIN
  2. METRONIDAZOLE. [Suspect]
     Active Substance: METRONIDAZOLE
  3. IBUPROFEN. [Suspect]
     Active Substance: IBUPROFEN

REACTIONS (7)
  - Rectal haemorrhage [None]
  - Vomiting [None]
  - Pulmonary haemosiderosis [None]
  - Arthralgia [None]
  - Abdominal pain [None]
  - Abdominal abscess [None]
  - International normalised ratio increased [None]

NARRATIVE: CASE EVENT DATE: 20210516
